FAERS Safety Report 9928312 (Version 1)
Quarter: 2014Q1

REPORT INFORMATION
  Report Type: Spontaneous
  Country: US (occurrence: None)
  Receive Date: 20140226
  Receipt Date: 20140226
  Transmission Date: 20141002
  Serious: Yes (Hospitalization, Other)
  Sender: FDA-Public Use
  Company Number: None

PATIENT
  Age: 7 Year
  Sex: Male
  Weight: 22.23 kg

DRUGS (1)
  1. TAMIFLU [Suspect]
     Indication: INFLUENZA
     Dosage: 6 ML LIQUID TWICE DAILY TAKEN BY MOUTH
     Route: 048
     Dates: start: 20140205, end: 20140210

REACTIONS (10)
  - Abnormal behaviour [None]
  - Aggression [None]
  - Belligerence [None]
  - Restlessness [None]
  - Agitation [None]
  - Hallucination [None]
  - Sleep terror [None]
  - Sleep disorder [None]
  - Anxiety [None]
  - Paranoia [None]
